FAERS Safety Report 8811786 (Version 1)
Quarter: 2012Q4

REPORT INFORMATION
  Report Type: 
  Country: BR (occurrence: BR)
  Receive Date: 20120927
  Receipt Date: 20120927
  Transmission Date: 20130627
  Serious: No
  Sender: FDA-Public Use
  Company Number: BR-B.I. PHARMACEUTICALS,INC./RIDGEFIELD-2012-BR-01079BR

PATIENT
  Age: 83 Year
  Sex: Female

DRUGS (5)
  1. TRAYENTA [Suspect]
     Indication: DIABETES MELLITUS MANAGEMENT
     Dosage: 5 mg
     Route: 048
     Dates: end: 20120918
  2. PANTOPRAZOL [Concomitant]
  3. CONCOR [Concomitant]
     Indication: HYPERTENSIVE CARDIOMYOPATHY
  4. ALDACTONE [Concomitant]
     Indication: HYPERTENSIVE CARDIOMYOPATHY
  5. ANGIO II [Concomitant]

REACTIONS (4)
  - Stomatitis [Not Recovered/Not Resolved]
  - Rash pustular [Not Recovered/Not Resolved]
  - Cough [Not Recovered/Not Resolved]
  - Respiratory tract infection [Unknown]
